FAERS Safety Report 6474678-5 (Version None)
Quarter: 2009Q4

REPORT INFORMATION
  Report Type: 
  Country: None (occurrence: None)
  Receive Date: 20091204
  Receipt Date: 20091125
  Transmission Date: 20100525
  Serious: Yes (Death, Other)
  Sender: FDA-Public Use
  Company Number: JP-PFIZER INC-2009300864

PATIENT
  Age: 62 Year
  Sex: Female
  Weight: 45 kg

DRUGS (4)
  1. CAMPTOSAR [Suspect]
     Indication: COLORECTAL CANCER
     Dosage: 184.6 MG/M2, 240 MG/BODY
     Route: 041
     Dates: start: 20090922, end: 20091006
  2. CALCIUM LEVOFOLINATE [Concomitant]
     Indication: COLORECTAL CANCER
     Dosage: 211.5 MG/M2, (275 MG/BODY)
     Route: 041
     Dates: start: 20090922, end: 20091006
  3. FLUOROURACIL [Concomitant]
     Indication: COLORECTAL CANCER
     Dosage: 2500 MG/M2, (3250 MG/BODY/D1-2 )
     Route: 041
     Dates: start: 20090922, end: 20091006
  4. AVASTIN [Concomitant]
     Indication: COLORECTAL CANCER
     Dosage: 200 MG
     Route: 041
     Dates: start: 20090922, end: 20091006

REACTIONS (4)
  - DISSEMINATED INTRAVASCULAR COAGULATION [None]
  - LEUKOPENIA [None]
  - NEUTROPENIA [None]
  - THROMBOCYTOPENIA [None]
